FAERS Safety Report 18298278 (Version 3)
Quarter: 2021Q4

REPORT INFORMATION
  Report Type: Spontaneous
  Country: US (occurrence: US)
  Receive Date: 20200922
  Receipt Date: 20211116
  Transmission Date: 20220303
  Serious: Yes (Other)
  Sender: FDA-Public Use
  Company Number: US-PFIZER INC-2020365101

PATIENT
  Age: 64 Year
  Sex: Male
  Weight: 89.356 kg

DRUGS (1)
  1. XELJANZ XR [Suspect]
     Active Substance: TOFACITINIB CITRATE
     Indication: Rheumatoid arthritis
     Dosage: 11 MG, 1X/DAY
     Route: 048

REACTIONS (6)
  - Cataract [Unknown]
  - Hypertension [Unknown]
  - Product prescribing error [Unknown]
  - Condition aggravated [Unknown]
  - Spondylitis [Unknown]
  - Fatigue [Unknown]
